FAERS Safety Report 13707924 (Version 2)
Quarter: 2017Q3

REPORT INFORMATION
  Report Type: Spontaneous
  Country: IT (occurrence: IT)
  Receive Date: 20170630
  Receipt Date: 20170705
  Transmission Date: 20171127
  Serious: Yes (Hospitalization)
  Sender: FDA-Public Use
  Company Number: IT-B.I. PHARMACEUTICALS,INC./RIDGEFIELD-2017-BI-035740

PATIENT
  Age: 76 Year
  Sex: Male
  Weight: 55 kg

DRUGS (1)
  1. MOBIC [Suspect]
     Active Substance: MELOXICAM
     Indication: PROCEDURAL PAIN
     Route: 048
     Dates: start: 20170528, end: 20170607

REACTIONS (6)
  - Cholestasis [Unknown]
  - Jaundice [Unknown]
  - Transaminases increased [Unknown]
  - Chromaturia [Unknown]
  - Faeces pale [Unknown]
  - Asthenia [Unknown]

NARRATIVE: CASE EVENT DATE: 20170614
